FAERS Safety Report 5457474-7 (Version None)
Quarter: 2007Q3

REPORT INFORMATION
  Report Type: 
  Country: None (occurrence: None)
  Receive Date: 20070918
  Receipt Date: 20070228
  Transmission Date: 20080115
  Serious: No
  Sender: FDA-Public Use
  Company Number: US-ASTRAZENECA-2007UW04154

PATIENT
  Sex: Male
  Weight: 152.3 kg

DRUGS (5)
  1. SEROQUEL [Suspect]
     Indication: SCHIZOPHRENIA
     Dosage: 50 - 300 MG
     Route: 048
     Dates: start: 20040419, end: 20051201
  2. SEROQUEL [Suspect]
     Indication: DEPRESSION
     Dosage: 50 - 300 MG
     Route: 048
     Dates: start: 20040419, end: 20051201
  3. ABILIFY [Concomitant]
     Dates: start: 20041027
  4. GEODON [Concomitant]
     Dates: start: 20040422, end: 20040529
  5. HALDOL [Concomitant]
     Dosage: 5 - 10 MG
     Dates: start: 20040225, end: 20040303

REACTIONS (5)
  - BLOOD CHOLESTEROL INCREASED [None]
  - BLOOD TRIGLYCERIDES INCREASED [None]
  - OBESITY [None]
  - TYPE 2 DIABETES MELLITUS [None]
  - WEIGHT INCREASED [None]
